FAERS Safety Report 16884765 (Version 1)
Quarter: 2019Q4

REPORT INFORMATION
  Report Type: Spontaneous
  Country: US (occurrence: US)
  Receive Date: 20190808
  Receipt Date: 20190808
  Transmission Date: 20200122
  Serious: Yes (Hospitalization)
  Sender: FDA-Public Use
  Company Number: None

PATIENT
  Age: 62 Year
  Sex: Female

DRUGS (15)
  1. AMBRISENTAN 10MG TABLETS 30/BO: 10MG [Suspect]
     Active Substance: AMBRISENTAN
     Indication: HEART DISEASE CONGENITAL
     Route: 048
     Dates: start: 201610
  2. PATANOL OPHT DROP [Concomitant]
  3. VITAMIN D2 [Concomitant]
     Active Substance: ERGOCALCIFEROL
  4. FLONASE [Concomitant]
     Active Substance: FLUTICASONE PROPIONATE
  5. NORCO [Concomitant]
     Active Substance: ACETAMINOPHEN\HYDROCODONE BITARTRATE
  6. REMODULIN [Concomitant]
     Active Substance: TREPROSTINIL
  7. VALACYCLOVIR [Concomitant]
     Active Substance: VALACYCLOVIR HYDROCHLORIDE
  8. SILDENAFIL. [Concomitant]
     Active Substance: SILDENAFIL
  9. VITAMIN D3 [Concomitant]
     Active Substance: CHOLECALCIFEROL
  10. METOLAZONE. [Concomitant]
     Active Substance: METOLAZONE
  11. FOLIC ACID. [Concomitant]
     Active Substance: FOLIC ACID
  12. PTASSIUM CHLORIDE [Concomitant]
  13. CEIRIZINE [Concomitant]
  14. ZO [Concomitant]
  15. PRED FORTE OPHT DROP [Concomitant]

REACTIONS (4)
  - Respiratory failure [None]
  - Acute respiratory failure [None]
  - Cardiac failure congestive [None]
  - Cardiac failure acute [None]

NARRATIVE: CASE EVENT DATE: 20190723
